FAERS Safety Report 8598992-2 (Version None)
Quarter: 2012Q3

REPORT INFORMATION
  Report Type: 
  Country: None (occurrence: None)
  Receive Date: 20120816
  Receipt Date: 20120807
  Transmission Date: 20120928
  Serious: Yes (Other)
  Sender: FDA-Public Use
  Company Number: IT-BRISTOL-MYERS SQUIBB COMPANY-16841405

PATIENT
  Age: 56 Year
  Sex: Male

DRUGS (5)
  1. SPRYCEL [Suspect]
     Indication: CHRONIC MYELOID LEUKAEMIA
     Dates: start: 20120709, end: 20120716
  2. POLASE [Concomitant]
     Dosage: POLASE SACHET 1 SACHET/DIE ORALLY
     Route: 048
  3. ASPIRIN [Concomitant]
     Dosage: TABS
     Route: 048
  4. ZESTRIL [Concomitant]
     Dosage: TABS
     Route: 048
  5. CARVEDILOL [Concomitant]
     Dosage: TABS
     Route: 048

REACTIONS (4)
  - TORSADE DE POINTES [None]
  - ASTHENIA [None]
  - DIARRHOEA [None]
  - VERTIGO [None]
